FAERS Safety Report 5576594-X (Version None)
Quarter: 2007Q4

REPORT INFORMATION
  Report Type: 
  Country: None (occurrence: None)
  Receive Date: 20071228
  Receipt Date: 20071221
  Transmission Date: 20080405
  Serious: Yes (Hospitalization)
  Sender: FDA-Public Use
  Company Number: FR-WYE-H01859807

PATIENT
  Sex: Male

DRUGS (7)
  1. INIPOMP [Suspect]
     Indication: GASTRIC DISORDER
     Route: 048
     Dates: start: 20071010, end: 20071026
  2. BACTRIM [Concomitant]
     Route: 048
     Dates: start: 20071110
  3. ANSATIPIN [Concomitant]
     Indication: ATYPICAL MYCOBACTERIAL INFECTION
     Dates: start: 20071020
  4. ZECLAR [Concomitant]
     Indication: ATYPICAL MYCOBACTERIAL INFECTION
     Dates: start: 20071020
  5. ETHAMBUTOL HYDROCHLORIDE [Concomitant]
     Indication: ATYPICAL MYCOBACTERIAL INFECTION
     Dates: start: 20071020
  6. COZAAR [Suspect]
     Indication: ESSENTIAL HYPERTENSION
     Route: 048
     Dates: start: 20071010, end: 20071026
  7. TRIFLUCAN [Concomitant]
     Dosage: ^DF^
     Route: 048
     Dates: start: 20071110

REACTIONS (1)
  - RENAL FAILURE [None]
